FAERS Safety Report 4672868-5 (Version None)
Quarter: 2005Q2

REPORT INFORMATION
  Report Type: 
  Country: None (occurrence: None)
  Receive Date: 20050524
  Receipt Date: 20050514
  Transmission Date: 20051028
  Serious: Yes (Hospitalization)
  Sender: FDA-Public Use
  Company Number: PHHO2005DE07775

PATIENT
  Age: 45 Year
  Sex: Male

DRUGS (10)
  1. ZOLEDRONATE [Suspect]
     Indication: OSTEOPOROSIS
     Dosage: 4 MG, ONCE A YEAR
     Route: 042
     Dates: start: 20030819, end: 20050418
  2. CALCIUM GLUCONATE [Concomitant]
     Indication: OSTEOPOROSIS
     Dosage: 500 MG, UNK
  3. VITAMIN D3 [Concomitant]
     Indication: OSTEOPOROSIS
     Dosage: 400 IU, UNK
  4. ACYCLOVIR [Concomitant]
     Dates: start: 20020101
  5. ISOCILLIN [Concomitant]
     Dates: start: 20040401
  6. URSO FALK [Concomitant]
     Dates: start: 20040401
  7. PANTOPRAZOLE SODIUM [Concomitant]
     Dates: start: 20040401
  8. PREDNISOLONE [Concomitant]
     Dates: start: 20030101
  9. MYCOPHENOLATE MOFETIL [Concomitant]
     Dates: start: 20030101
  10. VORICONAZOLE [Concomitant]
     Dates: start: 20050406

REACTIONS (3)
  - ASEPTIC NECROSIS BONE [None]
  - IMPAIRED HEALING [None]
  - SINUSITIS [None]
